FAERS Safety Report 9132771 (Version 3)
Quarter: 2013Q2

REPORT INFORMATION
  Report Type: Report from Study
  Country: GR (occurrence: GR)
  Receive Date: 20130107
  Receipt Date: 20130426
  Transmission Date: 20140414
  Serious: Yes (Other)
  Sender: FDA-Public Use
  Company Number: GR-ASTELLAS-2012EU011400

PATIENT
  Age: 57 Year
  Sex: Female
  Weight: 62 kg

DRUGS (4)
  1. BLINDED SOLIFENACIN-MIRABEGRON [Suspect]
     Indication: HYPERTONIC BLADDER
     Dosage: UNK
     Route: 048
     Dates: end: 20121220
  2. LEVOTHYROXINE SODIUM [Concomitant]
     Indication: HYPOTHYROIDISM
     Dosage: 112 MG, UID/QD
     Route: 048
     Dates: start: 1975
  3. ESOMEPRAZOLE [Concomitant]
     Indication: GASTROOESOPHAGEAL REFLUX DISEASE
     Dosage: 20 MG, UID/QD
     Route: 048
     Dates: start: 2008
  4. ATORVASTATIN CALCIUM TRIHYDRATE [Concomitant]
     Indication: DYSLIPIDAEMIA
     Dosage: 10 MG, UID/QD
     Route: 048
     Dates: start: 2010

REACTIONS (2)
  - Dermatitis allergic [Recovered/Resolved]
  - Hypotension [Recovered/Resolved]
